FAERS Safety Report 20141008 (Version 1)
Quarter: 2021Q4

REPORT INFORMATION
  Report Type: Spontaneous
  Country: FR (occurrence: FR)
  Receive Date: 20211202
  Receipt Date: 20211202
  Transmission Date: 20220303
  Serious: Yes (Hospitalization)
  Sender: FDA-Public Use
  Company Number: None

PATIENT
  Age: 75 Year
  Sex: Female
  Weight: 88 kg

DRUGS (3)
  1. TRAMADOL [Interacting]
     Active Substance: TRAMADOL
     Indication: Pain
     Dosage: UNK, NON CONNUE
     Route: 048
     Dates: start: 202106, end: 20210709
  2. LEVOFLOXACIN [Interacting]
     Active Substance: LEVOFLOXACIN
     Indication: Osteitis
     Dosage: 750 MILLIGRAM, Q2D (750 MILLIGRAM, 1J/2)
     Route: 048
     Dates: start: 20210702, end: 20210713
  3. METRONIDAZOLE [Interacting]
     Active Substance: METRONIDAZOLE
     Indication: Osteitis
     Dosage: 500 MILLIGRAM, TID (500 MG 3X/JR/1500 MILLIGRAM, QD )
     Route: 048
     Dates: start: 20210702, end: 20210713

REACTIONS (3)
  - Encephalopathy [Recovered/Resolved]
  - Myoclonus [Recovered/Resolved]
  - Drug interaction [Unknown]

NARRATIVE: CASE EVENT DATE: 20210709
